FAERS Safety Report 4354187-X (Version None)
Quarter: 2004Q2

REPORT INFORMATION
  Report Type: 
  Country: None (occurrence: None)
  Receive Date: 20040506
  Receipt Date: 20010416
  Transmission Date: 20050107
  Serious: Yes (Hospitalization)
  Sender: FDA-Public Use
  Company Number: US-MERCK-01041454

PATIENT
  Age: 78 Year
  Sex: Female

DRUGS (7)
  1. [COMPOSITION UNSPECIFIED] [Concomitant]
     Indication: GLAUCOMA
     Route: 047
  2. [THERAPY UNSPECIFIED] [Concomitant]
     Indication: PAIN
     Route: 065
  3. FOSAMAX [Suspect]
     Indication: OSTEOPOROSIS
     Route: 048
     Dates: start: 19950101, end: 20001101
  4. FOSAMAX [Suspect]
     Route: 048
     Dates: start: 20001101
  5. TENORMIN [Concomitant]
     Indication: HYPERTENSION
     Route: 065
  6. CALCIUM CARBONATE [Concomitant]
     Route: 065
  7. VITAMINS (UNSPECIFIED) [Concomitant]
     Route: 065

REACTIONS (12)
  - ABDOMINAL DISCOMFORT [None]
  - ABDOMINAL PAIN [None]
  - ADVERSE EVENT [None]
  - ANAEMIA [None]
  - BACK PAIN [None]
  - CEREBROSPINAL FLUID LEAKAGE [None]
  - DRUG INEFFECTIVE [None]
  - ERUCTATION [None]
  - GASTROINTESTINAL PAIN [None]
  - IRRITABLE BOWEL SYNDROME [None]
  - NAUSEA [None]
  - SPINAL COMPRESSION FRACTURE [None]
